FAERS Safety Report 8146006-0 (Version None)
Quarter: 2012Q1

REPORT INFORMATION
  Report Type: 
  Country: None (occurrence: None)
  Receive Date: 20120217
  Receipt Date: 20110708
  Transmission Date: 20120608
  Serious: No
  Sender: FDA-Public Use
  Company Number: US-ABBOTT-11P-163-0837573-00

PATIENT
  Sex: Male
  Weight: 77.18 kg

DRUGS (1)
  1. SIMCOR [Suspect]
     Indication: HIGH DENSITY LIPOPROTEIN DECREASED
     Dosage: 500/40 MG AT BEDTIME
     Dates: start: 20110101

REACTIONS (2)
  - PARAESTHESIA [None]
  - FLUSHING [None]
